FAERS Safety Report 8457604-9 (Version None)
Quarter: 2012Q2

REPORT INFORMATION
  Report Type: 
  Country: None (occurrence: None)
  Receive Date: 20120622
  Receipt Date: 20120614
  Transmission Date: 20120825
  Serious: No
  Sender: FDA-Public Use
  Company Number: US-BIOGENIDEC-2012BI021315

PATIENT
  Sex: Female

DRUGS (1)
  1. AVONEX [Suspect]
     Indication: MULTIPLE SCLEROSIS
     Route: 030

REACTIONS (8)
  - OPTIC NEURITIS [None]
  - AGITATION [None]
  - BALANCE DISORDER [None]
  - ASTHENIA [None]
  - GAIT DISTURBANCE [None]
  - BLINDNESS UNILATERAL [None]
  - ADVERSE EVENT [None]
  - MULTIPLE SCLEROSIS [None]
